FAERS Safety Report 19767585 (Version 1)
Quarter: 2021Q3

REPORT INFORMATION
  Report Type: Spontaneous
  Country: CN (occurrence: CN)
  Receive Date: 20210831
  Receipt Date: 20210831
  Transmission Date: 20211014
  Serious: Yes (Other)
  Sender: FDA-Public Use
  Company Number: CN-GLAXOSMITHKLINE-CNCH2021APC057000

PATIENT
  Age: 39 Year
  Sex: Female
  Weight: 55 kg

DRUGS (7)
  1. IBUPROFEN. [Suspect]
     Active Substance: IBUPROFEN
     Indication: TOOTHACHE
     Dosage: 0.3 G, BID
     Route: 048
     Dates: start: 20210801, end: 20210804
  2. METRONIDAZOLE TABLET [Suspect]
     Active Substance: METRONIDAZOLE
     Indication: TOOTHACHE
     Dosage: 0.4 G, TID
     Route: 048
     Dates: start: 20210801, end: 20210804
  3. COMPOUND GLYCYRRHIZIN TABLETS [Suspect]
     Active Substance: GLYCYRRHIZIN
     Indication: DRUG ERUPTION
     Dosage: 2 DF, TID
     Route: 048
  4. COMPOUND BETAMETHASONE INJECTION [Suspect]
     Active Substance: BETAMETHASONE DIPROPIONATE\BETAMETHASONE SODIUM PHOSPHATE
     Indication: DRUG ERUPTION
     Dosage: 5 MG/TIME, 1 TIME / WEEK
     Route: 030
  5. LEVOCETIRIZINE HYDROCHLORIDE TABLETS [Suspect]
     Active Substance: LEVOCETIRIZINE HYDROCHLORIDE
     Indication: DRUG ERUPTION
     Dosage: 5 MG, QD
     Route: 048
  6. MUCOPOLYSACCHARIDE POLYSULFATE CREAM [Suspect]
     Active Substance: GLYCOSAMINOGLYCANS
     Indication: DRUG ERUPTION
     Dosage: 5 G, BID, EXTERNAL USE
  7. AMOXICILLIN AND CLAVULANATE POTASSIUM DISPERSIBLE TABLETS [Suspect]
     Active Substance: AMOXICILLIN\CLAVULANATE POTASSIUM
     Indication: TOOTHACHE
     Dosage: 2 DF, BID
     Route: 048
     Dates: start: 20210801, end: 20210804

REACTIONS (6)
  - Pruritus [Recovered/Resolved]
  - Rash erythematous [Recovered/Resolved]
  - Erythema multiforme [Recovered/Resolved]
  - Rash [Recovered/Resolved]
  - Skin exfoliation [Recovered/Resolved]
  - Drug eruption [Recovered/Resolved]

NARRATIVE: CASE EVENT DATE: 20210808
